FAERS Safety Report 6567745-9 (Version None)
Quarter: 2010Q1

REPORT INFORMATION
  Report Type: 
  Country: None (occurrence: None)
  Receive Date: 20100203
  Receipt Date: 20100113
  Transmission Date: 20100710
  Serious: Yes (Other)
  Sender: FDA-Public Use
  Company Number: JP-ALLERGAN-1000543US

PATIENT
  Age: 81 Year
  Sex: Female

DRUGS (3)
  1. BOTOX [Suspect]
     Indication: BLEPHAROSPASM
     Dosage: 45 UNITS, SINGLE
     Route: 030
     Dates: start: 20091228, end: 20091228
  2. XALATAN [Concomitant]
     Indication: GLAUCOMA
     Route: 047
  3. CARTEOLOL HYDROCHLORIDE [Concomitant]
     Indication: GLAUCOMA
     Route: 047

REACTIONS (3)
  - EYELID PTOSIS [None]
  - MYDRIASIS [None]
  - VISUAL ACUITY REDUCED [None]
